FAERS Safety Report 6821248-2 (Version None)
Quarter: 2010Q3

REPORT INFORMATION
  Report Type: 
  Country: None (occurrence: None)
  Receive Date: 20100707
  Receipt Date: 20080623
  Transmission Date: 20110219
  Serious: No
  Sender: FDA-Public Use
  Company Number: US-PFIZER INC-2008032149

PATIENT
  Age: 84 Year
  Sex: Male

DRUGS (2)
  1. ZOLOFT [Suspect]
  2. OXYBUTYNIN CHLORIDE [Suspect]
     Indication: HYPERTONIC BLADDER
     Route: 062
     Dates: start: 20080101, end: 20080324

REACTIONS (2)
  - ABNORMAL SENSATION IN EYE [None]
  - DIZZINESS [None]
